FAERS Safety Report 16893407 (Version 1)
Quarter: 2019Q4

REPORT INFORMATION
  Report Type: Spontaneous
  Country: US (occurrence: US)
  Receive Date: 20190813
  Receipt Date: 20190813
  Transmission Date: 20200122
  Serious: No
  Sender: FDA-Public Use
  Company Number: None

PATIENT
  Sex: Male

DRUGS (2)
  1. TESTOSTERONE CYPIONATE. [Suspect]
     Active Substance: TESTOSTERONE CYPIONATE
  2. ZOMACTON [Suspect]
     Active Substance: SOMATROPIN

REACTIONS (3)
  - Product lot number issue [None]
  - Product dispensing error [None]
  - Suspected counterfeit product [None]

NARRATIVE: CASE EVENT DATE: 2019
